FAERS Safety Report 24627925 (Version 1)
Quarter: 2024Q4

REPORT INFORMATION
  Report Type: Spontaneous
  Country: US (occurrence: US)
  Receive Date: 20241117
  Receipt Date: 20241117
  Transmission Date: 20250115
  Serious: Yes (Life-Threatening, Hospitalization, Other)
  Sender: DR REDDYS
  Company Number: US-DRL-USA-LIT/USA/24/0016935

PATIENT
  Age: 15 Year
  Sex: Male

DRUGS (11)
  1. MINOCYCLINE [Suspect]
     Active Substance: MINOCYCLINE HYDROCHLORIDE
     Indication: Acne
  2. VANCOMYCIN [Suspect]
     Active Substance: VANCOMYCIN
     Indication: Evidence based treatment
     Dosage: 15 MG/KG EVERY 8 HOURS)
  3. CLINDAMYCIN [Suspect]
     Active Substance: CLINDAMYCIN
     Indication: Evidence based treatment
     Dosage: (10 MG/KG EVERY 8 HOURS)
  4. METHYLPREDNISOLONE [Suspect]
     Active Substance: METHYLPREDNISOLONE
     Indication: Drug reaction with eosinophilia and systemic symptoms
     Dosage: INTRAVENOUS METHYLPREDNISOLONE?(125 MG, APPROXIMATELY 1.5 MG/KG TWICE DAILY)
     Route: 042
  5. PREDNISONE [Suspect]
     Active Substance: PREDNISONE
     Indication: Drug reaction with eosinophilia and systemic symptoms
     Dosage: 60 MG ORAL PREDNISONE DAILY.
     Route: 048
  6. ISRADIPINE [Suspect]
     Active Substance: ISRADIPINE
     Indication: Hypertension
  7. AMLODIPINE [Suspect]
     Active Substance: AMLODIPINE BESYLATE
     Indication: Hypertension
     Dosage: (2.5 MG DAILY).
  8. CEFTRIAXONE [Suspect]
     Active Substance: CEFTRIAXONE
     Indication: Pneumonia bacterial
     Dosage: (2.5 MG DAILY).
  9. AMOXICILLIN [Suspect]
     Active Substance: AMOXICILLIN
     Indication: Pneumonia bacterial
     Dosage: (2.5 MG DAILY).
  10. RASBURICASE [Suspect]
     Active Substance: RASBURICASE
     Indication: Tubulointerstitial nephritis
     Dosage: (2.5 MG DAILY).
  11. MYCOPHENOLIC ACID [Suspect]
     Active Substance: MYCOPHENOLIC ACID
     Indication: Tubulointerstitial nephritis
     Dosage: (2.5 MG DAILY).

REACTIONS (4)
  - Drug reaction with eosinophilia and systemic symptoms [Unknown]
  - Drug-induced liver injury [Unknown]
  - Tubulointerstitial nephritis [Unknown]
  - Acute kidney injury [Unknown]
